FAERS Safety Report 10419833 (Version 1)
Quarter: 2014Q3

REPORT INFORMATION
  Report Type: Spontaneous
  Country: ES (occurrence: ES)
  Receive Date: 20140829
  Receipt Date: 20140829
  Transmission Date: 20150326
  Serious: Yes (Hospitalization)
  Sender: FDA-Public Use
  Company Number: ES-EISAI INC-E2090-03479-SPO-ES

PATIENT
  Age: 73 Year
  Sex: Male
  Weight: 57 kg

DRUGS (2)
  1. LEVETIRACETAM. [Concomitant]
     Active Substance: LEVETIRACETAM
     Indication: COMPLEX PARTIAL SEIZURES
     Dosage: UNKNOWN
  2. ZONEGRAN [Suspect]
     Active Substance: ZONISAMIDE
     Indication: COMPLEX PARTIAL SEIZURES
     Route: 048
     Dates: start: 20140414, end: 20140801

REACTIONS (4)
  - Antineutrophil cytoplasmic antibody increased [Recovering/Resolving]
  - Depression [Recovering/Resolving]
  - Eosinophilia [Recovering/Resolving]
  - Cachexia [Recovering/Resolving]

NARRATIVE: CASE EVENT DATE: 20140501
